FAERS Safety Report 5929122-0 (Version None)
Quarter: 2008Q4

REPORT INFORMATION
  Report Type: 
  Country: None (occurrence: None)
  Receive Date: 20081023
  Receipt Date: 20081023
  Transmission Date: 20090506
  Serious: Yes (Hospitalization)
  Sender: FDA-Public Use
  Company Number: None

PATIENT
  Age: 42 Year
  Sex: Female
  Weight: 49.8957 kg

DRUGS (2)
  1. ERYTHROMYCIN [Suspect]
     Indication: MITRAL VALVE PROLAPSE
     Dosage: 4 TABLETS
     Dates: start: 20081021, end: 20081021
  2. ERYTHROMYCIN [Suspect]
     Indication: PREMEDICATION
     Dosage: 4 TABLETS
     Dates: start: 20081021, end: 20081021

REACTIONS (1)
  - VOMITING [None]
